FAERS Safety Report 5209351-4 (Version None)
Quarter: 2006Q4

REPORT INFORMATION
  Report Type: 
  Country: None (occurrence: None)
  Receive Date: 20061101
  Receipt Date: 20060831
  Transmission Date: 20070319
  Serious: No
  Sender: FDA-Public Use
  Company Number: 2006PV020567

PATIENT
  Age: 61 Year
  Sex: Female
  Weight: 57.6068 kg

DRUGS (5)
  1. SYMLIN [Suspect]
     Indication: DIABETES MELLITUS INSULIN-DEPENDENT
     Dosage: 30 MCG; TID; SC; SEE IMAGE
     Route: 058
  2. SYMLIN [Suspect]
     Indication: DIABETES MELLITUS INSULIN-DEPENDENT
     Dosage: 30 MCG; TID; SC; SEE IMAGE
     Route: 058
     Dates: start: 20060829
  3. NOVOLOG [Concomitant]
  4. ACIDOPHILUS [Concomitant]
  5. COZAAR [Concomitant]

REACTIONS (7)
  - AGITATION [None]
  - CONSTIPATION [None]
  - DRUG INEFFECTIVE [None]
  - HEADACHE [None]
  - INSOMNIA [None]
  - NAUSEA [None]
  - WEIGHT DECREASED [None]
